FAERS Safety Report 9535827 (Version 1)
Quarter: 2013Q3

REPORT INFORMATION
  Report Type: Spontaneous
  Country: US (occurrence: None)
  Receive Date: 20130917
  Receipt Date: 20130917
  Transmission Date: 20140515
  Serious: Yes (Other)
  Sender: FDA-Public Use
  Company Number: None

PATIENT
  Age: 53 Year
  Sex: Female
  Weight: 62.14 kg

DRUGS (1)
  1. DOXYCYCLINE [Suspect]
     Route: 048
     Dates: start: 20130822, end: 20130826

REACTIONS (1)
  - Micturition urgency [None]
